FAERS Safety Report 18854879 (Version 3)
Quarter: 2021Q1

REPORT INFORMATION
  Report Type: Report from Study
  Country: DE (occurrence: DE)
  Receive Date: 20210205
  Receipt Date: 20210308
  Transmission Date: 20210420
  Serious: Yes (Hospitalization)
  Sender: FDA-Public Use
  Company Number: DE-JNJFOC-20210205032

PATIENT
  Age: 56 Year

DRUGS (1)
  1. VENTAVIS [Suspect]
     Active Substance: ILOPROST
     Indication: PULMONARY ARTERIAL HYPERTENSION
     Dosage: V10 START DATE UNKNOWN (BEFORE 2019)
     Route: 055

REACTIONS (2)
  - Inappropriate schedule of product administration [Unknown]
  - Cardiac pacemaker adjustment [Recovered/Resolved]

NARRATIVE: CASE EVENT DATE: 20210128
